FAERS Safety Report 14627050 (Version 2)
Quarter: 2018Q2

REPORT INFORMATION
  Report Type: Report from Study
  Country: US (occurrence: US)
  Receive Date: 20180312
  Receipt Date: 20180413
  Transmission Date: 20180711
  Serious: Yes (Other)
  Sender: FDA-Public Use
  Company Number: US-AMGEN-USASL2018031151

PATIENT
  Age: 61 Year
  Sex: Female

DRUGS (2)
  1. ENBREL [Suspect]
     Active Substance: ETANERCEPT
     Dosage: 50 MG, QWK
     Route: 065
  2. ENBREL [Suspect]
     Active Substance: ETANERCEPT
     Indication: PSORIATIC ARTHROPATHY
     Dosage: 50 MG, QWK
     Route: 065

REACTIONS (18)
  - Epistaxis [Recovered/Resolved]
  - Myofascial pain syndrome [Unknown]
  - Fatigue [Unknown]
  - Drug effect incomplete [Unknown]
  - Hypersensitivity [Unknown]
  - Depression [Unknown]
  - Hepatic steatosis [Unknown]
  - Mucous membrane disorder [Unknown]
  - Dry eye [Unknown]
  - Gallbladder disorder [Unknown]
  - Menopausal symptoms [Unknown]
  - Influenza [Unknown]
  - Stress [Unknown]
  - Dry mouth [Unknown]
  - Sinus congestion [Unknown]
  - Rheumatoid arthritis [Unknown]
  - Streptococcal infection [Unknown]
  - Weight increased [Unknown]

NARRATIVE: CASE EVENT DATE: 201705
